FAERS Safety Report 4994990-6 (Version None)
Quarter: 2006Q2

REPORT INFORMATION
  Report Type: 
  Country: None (occurrence: None)
  Receive Date: 20060503
  Receipt Date: 20060420
  Transmission Date: 20061013
  Serious: Yes (Death)
  Sender: FDA-Public Use
  Company Number: WAES 0604USA03905

PATIENT
  Age: 18 Year
  Sex: Male

DRUGS (3)
  1. SYPRINE [Suspect]
     Indication: HEPATO-LENTICULAR DEGENERATION
     Dosage: 500 MG/BID/PO
     Route: 048
  2. CAP PLACEBO [Suspect]
     Indication: HEPATO-LENTICULAR DEGENERATION
     Dosage: DAILY/PO
     Route: 048
  3. ZINC [Concomitant]

REACTIONS (4)
  - CONDITION AGGRAVATED [None]
  - LABORATORY TEST ABNORMAL [None]
  - NEUROLOGICAL SYMPTOM [None]
  - STARVATION [None]
